FAERS Safety Report 21837852 (Version 1)
Quarter: 2023Q1

REPORT INFORMATION
  Report Type: Spontaneous
  Country: US (occurrence: US)
  Receive Date: 20230109
  Receipt Date: 20230109
  Transmission Date: 20230418
  Serious: No
  Sender: FDA-Public Use
  Company Number: USA--2022-US-000851

PATIENT
  Age: 69 Year
  Sex: Female

DRUGS (3)
  1. LATANOPROST [Suspect]
     Active Substance: LATANOPROST
     Dosage: I GGT OU DAILY
  2. Refresh Reliva PF [Concomitant]
  3. Vitamin D 800 IU [Concomitant]
     Route: 048

REACTIONS (3)
  - Drug ineffective [Recovered/Resolved]
  - Eye pruritus [Recovered/Resolved]
  - Ocular hyperaemia [Recovered/Resolved]

NARRATIVE: CASE EVENT DATE: 20220629
